FAERS Safety Report 19241041 (Version 1)
Quarter: 2021Q2

REPORT INFORMATION
  Report Type: Spontaneous
  Country: CN (occurrence: CN)
  Receive Date: 20210511
  Receipt Date: 20210511
  Transmission Date: 20210717
  Serious: Yes (Hospitalization)
  Sender: FDA-Public Use
  Company Number: NVSC2021CN099462

PATIENT
  Age: 14 Year
  Sex: Male
  Weight: 72 kg

DRUGS (1)
  1. FLUVASTATIN SODIUM. [Suspect]
     Active Substance: FLUVASTATIN SODIUM
     Indication: NEPHROTIC SYNDROME
     Dosage: 1 TABLET, QD (SUSTAINED RELEASE TABLET)
     Route: 048
     Dates: start: 20210327, end: 20210404

REACTIONS (1)
  - Drug-induced liver injury [Recovering/Resolving]

NARRATIVE: CASE EVENT DATE: 20210404
